FAERS Safety Report 4308025-1 (Version None)
Quarter: 2004Q1

REPORT INFORMATION
  Report Type: 
  Country: None (occurrence: None)
  Receive Date: 20040301
  Receipt Date: 20030324
  Transmission Date: 20041129
  Serious: No
  Sender: FDA-Public Use
  Company Number: US-BRISTOL-MYERS SQUIBB COMPANY-12220497

PATIENT
  Age: 43 Year
  Sex: Female
  Weight: 73 kg

DRUGS (7)
  1. GLUCOPHAGE [Suspect]
     Indication: DIABETES MELLITUS
     Route: 048
  2. EFFEXOR [Concomitant]
  3. LIPITOR [Concomitant]
  4. CLONAZEPAM [Concomitant]
  5. WESTHROID [Concomitant]
  6. REMERON [Concomitant]
  7. VIVELLE [Concomitant]

REACTIONS (4)
  - DIABETES MELLITUS INADEQUATE CONTROL [None]
  - DISORIENTATION [None]
  - NAUSEA [None]
  - TREMOR [None]
